FAERS Safety Report 18623095 (Version 1)
Quarter: 2020Q4

REPORT INFORMATION
  Report Type: Spontaneous
  Country: US (occurrence: US)
  Receive Date: 20201216
  Receipt Date: 20201216
  Transmission Date: 20210114
  Serious: No
  Sender: FDA-Public Use
  Company Number: None

PATIENT
  Age: 52 Year
  Sex: Male
  Weight: 135 kg

DRUGS (3)
  1. FLUPHENAZINE [Suspect]
     Active Substance: FLUPHENAZINE
     Dosage: ?          QUANTITY:1 INJECTION(S);OTHER FREQUENCY:EVERY 2 WEEKS;?
     Route: 030
  2. BISACODYL. [Concomitant]
     Active Substance: BISACODYL
  3. THIOTHIXENE. [Suspect]
     Active Substance: THIOTHIXENE

REACTIONS (4)
  - Multiple fractures [None]
  - Constipation [None]
  - Suicidal ideation [None]
  - Bruxism [None]

NARRATIVE: CASE EVENT DATE: 20200601
